FAERS Safety Report 22124126 (Version 1)
Quarter: 2023Q1

REPORT INFORMATION
  Report Type: Spontaneous
  Country: GB (occurrence: GB)
  Receive Date: 20230322
  Receipt Date: 20230322
  Transmission Date: 20230418
  Serious: Yes (Hospitalization, Other)
  Sender: FDA-Public Use
  Company Number: GB-MHRA-MED-202303161216454380-LYHPG

PATIENT
  Age: 70 Year

DRUGS (2)
  1. CIPROFLOXACIN [Suspect]
     Active Substance: CIPROFLOXACIN
     Indication: Urinary tract infection
     Dosage: FOR 7 DAYS
     Route: 065
     Dates: start: 20221014
  2. CIPROFLOXACIN [Suspect]
     Active Substance: CIPROFLOXACIN
     Dosage: FOR 3 DAYS
     Route: 065
     Dates: start: 20221025

REACTIONS (2)
  - Tenosynovitis [Not Recovered/Not Resolved]
  - Tendon pain [Recovering/Resolving]
